FAERS Safety Report 8619153-4 (Version None)
Quarter: 2012Q3

REPORT INFORMATION
  Report Type: 
  Country: None (occurrence: None)
  Receive Date: 20120824
  Receipt Date: 20120820
  Transmission Date: 20120928
  Serious: No
  Sender: FDA-Public Use
  Company Number: US-009507513-1208USA008368

PATIENT

DRUGS (2)
  1. FOSAMAX [Suspect]
     Dosage: UNK DF, UNK
     Route: 048
  2. FOSAMAX [Suspect]
     Dosage: UNK DF, UNK
     Route: 048

REACTIONS (1)
  - DRUG INEFFECTIVE [None]
